FAERS Safety Report 16103471 (Version 2)
Quarter: 2019Q2

REPORT INFORMATION
  Report Type: Report from Study
  Country: None (occurrence: US)
  Receive Date: 20190322
  Receipt Date: 20190429
  Transmission Date: 20190711
  Serious: Yes (Other)
  Sender: FDA-Public Use
  Company Number: US-ABBVIE-19K-163-2711064-00

PATIENT
  Sex: Male

DRUGS (1)
  1. HUMIRA [Suspect]
     Active Substance: ADALIMUMAB
     Indication: CROHN^S DISEASE
     Route: 058

REACTIONS (5)
  - Urinary tract obstruction [Not Recovered/Not Resolved]
  - Procedural complication [Not Recovered/Not Resolved]
  - Colostomy [Not Recovered/Not Resolved]
  - Intestinal operation [Not Recovered/Not Resolved]
  - Renal injury [Not Recovered/Not Resolved]
